FAERS Safety Report 8033756-X (Version None)
Quarter: 2012Q1

REPORT INFORMATION
  Report Type: 
  Country: None (occurrence: None)
  Receive Date: 20120110
  Receipt Date: 20120106
  Transmission Date: 20120608
  Serious: Yes (Other)
  Sender: FDA-Public Use
  Company Number: GB-JNJFOC-20111206347

PATIENT
  Sex: Male

DRUGS (1)
  1. NICORETTE [Suspect]
     Indication: PRODUCT USED FOR UNKNOWN INDICATION
     Dosage: UNSPECIFIED FREQUENCY; USED FOR 14 YEARS (DATES OF THERAPY UNSPECIFIED)
     Route: 048

REACTIONS (4)
  - OFF LABEL USE [None]
  - INTENTIONAL DRUG MISUSE [None]
  - TOOTH LOSS [None]
  - PRODUCT QUALITY ISSUE [None]
